FAERS Safety Report 4845405-X (Version None)
Quarter: 2005Q4

REPORT INFORMATION
  Report Type: 
  Country: None (occurrence: None)
  Receive Date: 20051125
  Receipt Date: 20051121
  Transmission Date: 20060501
  Serious: Yes (Hospitalization)
  Sender: FDA-Public Use
  Company Number: TCI2005A03842

PATIENT
  Age: 57 Year
  Sex: Male

DRUGS (4)
  1. LANSOPRAZOLE [Suspect]
     Indication: GASTRIC ULCER
     Dosage: 30 MG (15 MG, 2 IN 1 D) PER ORAL
     Route: 048
     Dates: start: 20050106, end: 20050117
  2. ZITHROMAX [Concomitant]
  3. LOXONIN (LOXOPROFEN SODIUM) (TABLETS) [Concomitant]
  4. MARZULENE S (MARZULENE S) (GRANULATE) [Concomitant]

REACTIONS (7)
  - ABDOMINAL PAIN UPPER [None]
  - DERMATITIS EXFOLIATIVE [None]
  - FLUSHING [None]
  - LYMPHOCYTE STIMULATION TEST POSITIVE [None]
  - PUSTULAR PSORIASIS [None]
  - PYREXIA [None]
  - SKIN EXFOLIATION [None]
